FAERS Safety Report 14812683 (Version 1)
Quarter: 2018Q2

REPORT INFORMATION
  Report Type: Spontaneous
  Country: FR (occurrence: FR)
  Receive Date: 20180425
  Receipt Date: 20180425
  Transmission Date: 20180711
  Serious: Yes (Other)
  Sender: FDA-Public Use
  Company Number: FR-MERCK KGAA-2046507

PATIENT
  Sex: Female

DRUGS (1)
  1. NOVOTHYROX [Suspect]
     Active Substance: LEVOTHYROXINE SODIUM
     Indication: PRODUCT USED FOR UNKNOWN INDICATION

REACTIONS (14)
  - Weight increased [None]
  - Colitis ulcerative [None]
  - Headache [None]
  - Alopecia [None]
  - Depression [None]
  - Loss of personal independence in daily activities [None]
  - Depressed mood [None]
  - Fatigue [None]
  - Diarrhoea [None]
  - Dysphonia [None]
  - Decreased activity [None]
  - Nausea [None]
  - Feeling abnormal [None]
  - Delusion [None]
